FAERS Safety Report 4657596-4 (Version None)
Quarter: 2005Q2

REPORT INFORMATION
  Report Type: 
  Country: None (occurrence: None)
  Receive Date: 20050405
  Receipt Date: 20040520
  Transmission Date: 20051028
  Serious: Yes (Life-Threatening)
  Sender: FDA-Public Use
  Company Number: 2004024801

PATIENT
  Age: 44 Year
  Sex: Male

DRUGS (2)
  1. GEODON [Suspect]
     Indication: SCHIZOAFFECTIVE DISORDER
     Dosage: 320 MG (2 IN 1 D)
     Dates: start: 20031111, end: 20040101
  2. VALPROATE SODIUM [Suspect]
     Indication: SCHIZOAFFECTIVE DISORDER
     Dosage: 3000 MG (2 IN 1 D)
     Dates: start: 20021209, end: 20040101

REACTIONS (3)
  - BLOOD URINE PRESENT [None]
  - INTENTIONAL MISUSE [None]
  - THROMBOCYTOPENIA [None]
